FAERS Safety Report 19680281 (Version 2)
Quarter: 2021Q3

REPORT INFORMATION
  Report Type: Report from Study
  Country: CA (occurrence: CA)
  Receive Date: 20210810
  Receipt Date: 20210827
  Transmission Date: 20211014
  Serious: Yes (Other)
  Sender: FDA-Public Use
  Company Number: CA-ASTRAZENECA-2021A663692

PATIENT
  Sex: Male

DRUGS (5)
  1. ADVAIR HFA [Concomitant]
     Active Substance: FLUTICASONE PROPIONATE\SALMETEROL XINAFOATE
  2. XOLAIR [Concomitant]
     Active Substance: OMALIZUMAB
  3. VENTOLIN [Concomitant]
     Active Substance: ALBUTEROL SULFATE
  4. FASENRA [Suspect]
     Active Substance: BENRALIZUMAB
     Indication: ASTHMA
     Dosage: 30.0MG UNKNOWN
     Route: 058
     Dates: start: 20180928
  5. PREDNISONE. [Concomitant]
     Active Substance: PREDNISONE

REACTIONS (3)
  - Product dose omission issue [Unknown]
  - Insurance issue [Unknown]
  - Asthma [Recovered/Resolved]
